FAERS Safety Report 7096487-9 (Version None)
Quarter: 2010Q4

REPORT INFORMATION
  Report Type: 
  Country: None (occurrence: None)
  Receive Date: 20101111
  Receipt Date: 20101105
  Transmission Date: 20110411
  Serious: Yes (Hospitalization)
  Sender: FDA-Public Use
  Company Number: A0743995A

PATIENT
  Sex: Female
  Weight: 131.4 kg

DRUGS (7)
  1. AVANDIA [Suspect]
     Route: 048
     Dates: end: 20060601
  2. AVANDARYL [Suspect]
     Route: 048
  3. PRAVACHOL [Concomitant]
  4. ZOLOFT [Concomitant]
  5. METHADONE [Concomitant]
  6. ACIPHEX [Concomitant]
  7. DIOVAN [Concomitant]

REACTIONS (7)
  - BLISTER [None]
  - CARDIAC DISORDER [None]
  - CARDIAC FAILURE CONGESTIVE [None]
  - CARDIOVASCULAR DISORDER [None]
  - HEART INJURY [None]
  - OEDEMA [None]
  - RENAL FAILURE [None]
